FAERS Safety Report 18600253 (Version 1)
Quarter: 2020Q4

REPORT INFORMATION
  Report Type: Spontaneous
  Country: US (occurrence: US)
  Receive Date: 20201209
  Receipt Date: 20201209
  Transmission Date: 20210114
  Serious: Yes (Hospitalization)
  Sender: FDA-Public Use
  Company Number: None

PATIENT
  Age: 40 Year
  Sex: Female

DRUGS (11)
  1. AMBRISENTAN 10MG TAB [Suspect]
     Active Substance: AMBRISENTAN
     Indication: PULMONARY ARTERIAL HYPERTENSION
     Route: 048
     Dates: start: 20190424
  2. SPIRONOLACT [Concomitant]
     Active Substance: SPIRONOLACTONE
  3. FUROSEMIDE. [Concomitant]
     Active Substance: FUROSEMIDE
  4. TADALAFIL 20MG TAB [Suspect]
     Active Substance: TADALAFIL
     Indication: PULMONARY ARTERIAL HYPERTENSION
     Route: 048
     Dates: start: 20190424
  5. PANTOPRAZOLE [Concomitant]
     Active Substance: PANTOPRAZOLE
  6. POT CL MICRO ER [Concomitant]
  7. TRAMADOL HCL [Concomitant]
     Active Substance: TRAMADOL HYDROCHLORIDE
  8. CEPHALEXIN. [Concomitant]
     Active Substance: CEPHALEXIN
  9. HYDROXYCHLOR [Concomitant]
     Active Substance: HYDROXYCHLOROQUINE
  10. DOXYCYCL HYC [Concomitant]
  11. METHYLPRED [Concomitant]
     Active Substance: METHYLPREDNISOLONE

REACTIONS (3)
  - Pneumonia [None]
  - Pyrexia [None]
  - Chest pain [None]

NARRATIVE: CASE EVENT DATE: 20201114
